FAERS Safety Report 6045147-1 (Version None)
Quarter: 2009Q1

REPORT INFORMATION
  Report Type: 
  Country: None (occurrence: None)
  Receive Date: 20090121
  Receipt Date: 20090113
  Transmission Date: 20090719
  Serious: Yes (Other)
  Sender: FDA-Public Use
  Company Number: US-ASTRAZENECA-2009UW01049

PATIENT
  Age: 60 Year
  Sex: Male
  Weight: 93 kg

DRUGS (8)
  1. CRESTOR [Suspect]
     Indication: BLOOD CHOLESTEROL
     Route: 048
  2. CRESTOR [Suspect]
     Route: 048
  3. LEVOTHYROXINE SODIUM [Concomitant]
  4. ASPIRIN [Concomitant]
     Dosage: 1 REGULAR ASA DAILY
  5. METFORMIN [Concomitant]
  6. FISH OIL [Concomitant]
     Dosage: 4 1000 MG
  7. NIASPAN [Concomitant]
  8. RAMIPRIL [Concomitant]

REACTIONS (1)
  - TYPE 2 DIABETES MELLITUS [None]
